FAERS Safety Report 18158941 (Version 1)
Quarter: 2020Q3

REPORT INFORMATION
  Report Type: Spontaneous
  Country: ID (occurrence: ID)
  Receive Date: 20200817
  Receipt Date: 20200817
  Transmission Date: 20201103
  Serious: Yes (Hospitalization)
  Sender: FDA-Public Use
  Company Number: ID-PFIZER INC-2020313594

PATIENT
  Age: 32 Year
  Sex: Female

DRUGS (1)
  1. IBRANCE [Suspect]
     Active Substance: PALBOCICLIB
     Indication: BREAST CANCER
     Dosage: 125 MG, ONCE DAILY (FOR 21 (TWENTY ONE) CONSECUTIVE DAYS FOLLOWED BY 7 (SEVEN) DAYS OFF TREATMENT)
     Route: 048
     Dates: start: 20200723

REACTIONS (6)
  - Nausea [Recovered/Resolved]
  - Vomiting [Recovered/Resolved]
  - Eating disorder [Recovering/Resolving]
  - Abdominal pain upper [Not Recovered/Not Resolved]
  - Back pain [Recovering/Resolving]
  - Peripheral swelling [Recovering/Resolving]

NARRATIVE: CASE EVENT DATE: 20200725
